FAERS Safety Report 7761655-7 (Version None)
Quarter: 2011Q3

REPORT INFORMATION
  Report Type: 
  Country: None (occurrence: None)
  Receive Date: 20110920
  Receipt Date: 20110906
  Transmission Date: 20111222
  Serious: Yes (Hospitalization, Other)
  Sender: FDA-Public Use
  Company Number: PHHY2011JP70254

PATIENT
  Sex: Female

DRUGS (6)
  1. NEORAL [Suspect]
     Indication: PUSTULAR PSORIASIS
     Dosage: 150 MG, UNK
     Route: 048
     Dates: start: 20101201, end: 20110716
  2. NORVASC [Concomitant]
     Dosage: 2.5 MG, UNK
  3. NORVASC [Concomitant]
     Dosage: 5 MG, UNK
     Dates: start: 20110715
  4. NOSE DROPS [Concomitant]
  5. NEORAL [Suspect]
     Dosage: 100 MG, UNK
     Route: 048
     Dates: start: 20110701
  6. STABILIZER [Concomitant]

REACTIONS (4)
  - BLOOD PRESSURE INCREASED [None]
  - NASAL CONGESTION [None]
  - DYSPNOEA [None]
  - DISEASE RECURRENCE [None]
